FAERS Safety Report 14478718 (Version 4)
Quarter: 2018Q2

REPORT INFORMATION
  Report Type: Spontaneous
  Country: IT (occurrence: IT)
  Receive Date: 20180202
  Receipt Date: 20180611
  Transmission Date: 20180711
  Serious: Yes (Hospitalization)
  Sender: FDA-Public Use
  Company Number: IT-AUROBINDO-AUR-APL-2018-003829

PATIENT

DRUGS (1)
  1. METFORMIN FILM-COATED TABLET [Suspect]
     Active Substance: METFORMIN HYDROCHLORIDE
     Indication: PRODUCT USED FOR UNKNOWN INDICATION
     Dosage: DAILY DOSE 3000 MG
     Route: 065

REACTIONS (4)
  - Lactic acidosis [Unknown]
  - Urine albumin/creatinine ratio abnormal [Unknown]
  - Abdominal discomfort [Unknown]
  - Cardio-respiratory arrest [Unknown]
